FAERS Safety Report 8125884-5 (Version None)
Quarter: 2012Q1

REPORT INFORMATION
  Report Type: 
  Country: None (occurrence: None)
  Receive Date: 20120209
  Receipt Date: 20120202
  Transmission Date: 20120608
  Serious: Yes (Other)
  Sender: FDA-Public Use
  Company Number: SE-PFIZER INC-2006108986

PATIENT
  Age: 23 Year
  Sex: Female

DRUGS (2)
  1. GENOTROPIN [Suspect]
     Dosage: UNK
     Dates: end: 20060901
  2. GENOTROPIN [Suspect]
     Indication: HYPOPITUITARISM
     Dosage: 1 MG, 1X/DAY
     Dates: start: 20010510, end: 20050101

REACTIONS (1)
  - NEURILEMMOMA [None]
